FAERS Safety Report 8295020-3 (Version None)
Quarter: 2012Q2

REPORT INFORMATION
  Report Type: 
  Country: None (occurrence: None)
  Receive Date: 20120418
  Receipt Date: 20120411
  Transmission Date: 20120825
  Serious: Yes (Hospitalization)
  Sender: FDA-Public Use
  Company Number: DE-ELI_LILLY_AND_COMPANY-DE201204003670

PATIENT
  Sex: Male

DRUGS (4)
  1. PREDNISOLONE [Concomitant]
     Dosage: 5 MG, QD
  2. FOLCUR [Concomitant]
     Dosage: 5 MG, WEEKLY (1/W)
  3. FORTEO [Suspect]
     Indication: OSTEOPOROSIS
     Dosage: 20 UG, QD
     Route: 058
     Dates: start: 20111009
  4. METHOTREXATE SODIUM [Concomitant]
     Dosage: UNK, WEEKLY (1/W)
     Route: 030

REACTIONS (4)
  - PYREXIA [None]
  - RASH MACULO-PAPULAR [None]
  - PAIN IN EXTREMITY [None]
  - MUSCLE TIGHTNESS [None]
